FAERS Safety Report 21593293 (Version 1)
Quarter: 2022Q4

REPORT INFORMATION
  Report Type: Spontaneous
  Country: IR (occurrence: IR)
  Receive Date: 20221114
  Receipt Date: 20221114
  Transmission Date: 20230112
  Serious: Yes (Other)
  Sender: FDA-Public Use
  Company Number: IR-SUN PHARMACEUTICAL INDUSTRIES LTD-2022R1-363619

PATIENT
  Age: 49 Year
  Sex: Male

DRUGS (5)
  1. PRAMIPEXOLE [Suspect]
     Active Substance: PRAMIPEXOLE
     Indication: Parkinson^s disease
     Dosage: 0.18 MILLIGRAM, TID
     Route: 065
  2. PRAMIPEXOLE [Suspect]
     Active Substance: PRAMIPEXOLE
     Indication: Gait disturbance
  3. levodopa-C [Concomitant]
     Indication: Parkinson^s disease
     Dosage: UNK (250/25 FOUR TIMES A DAY)
     Route: 065
  4. levodopa-C [Concomitant]
     Indication: Gait disturbance
     Dosage: UNK (1500 MG)
     Route: 065
  5. SELEGILINE [Concomitant]
     Active Substance: SELEGILINE
     Indication: Parkinson^s disease
     Dosage: 5 MILLIGRAM, BID
     Route: 065

REACTIONS (1)
  - Treatment failure [Unknown]
